FAERS Safety Report 19027423 (Version 2)
Quarter: 2021Q1

REPORT INFORMATION
  Report Type: Spontaneous
  Country: US (occurrence: US)
  Receive Date: 20210319
  Receipt Date: 20210330
  Transmission Date: 20210420
  Serious: Yes (Hospitalization, Other)
  Sender: FDA-Public Use
  Company Number: US-ASTRAZENECA-2021A132618

PATIENT
  Age: 21820 Day
  Sex: Male
  Weight: 61.7 kg

DRUGS (46)
  1. VITAMIN D3 [Concomitant]
     Active Substance: CHOLECALCIFEROL
  2. KETOCONAZOLE. [Concomitant]
     Active Substance: KETOCONAZOLE
  3. FISH OIL [Concomitant]
     Active Substance: FISH OIL
  4. CYCLOBENZAPRINE. [Concomitant]
     Active Substance: CYCLOBENZAPRINE
  5. BENZONATATE. [Concomitant]
     Active Substance: BENZONATATE
  6. ALBUTEROL. [Concomitant]
     Active Substance: ALBUTEROL
  7. BUDESONIDE. [Concomitant]
     Active Substance: BUDESONIDE
  8. METFORMIN [Concomitant]
     Active Substance: METFORMIN HYDROCHLORIDE
  9. SPIRONOLACTONE. [Concomitant]
     Active Substance: SPIRONOLACTONE
  10. OXYCONTIN [Concomitant]
     Active Substance: OXYCODONE HYDROCHLORIDE
  11. SYMBICORT [Concomitant]
     Active Substance: BUDESONIDE\FORMOTEROL FUMARATE DIHYDRATE
  12. SENNA [Concomitant]
     Active Substance: SENNA LEAF\SENNOSIDES\SENNOSIDES A AND B
  13. SULFAMETHOXAZOLE [Concomitant]
     Active Substance: SULFAMETHOXAZOLE
  14. METOPROLOL. [Concomitant]
     Active Substance: METOPROLOL
  15. BUPROPION. [Concomitant]
     Active Substance: BUPROPION
  16. SPIRIVA [Concomitant]
     Active Substance: TIOTROPIUM BROMIDE MONOHYDRATE
  17. IBUPROFEN. [Concomitant]
     Active Substance: IBUPROFEN
  18. LACTULOSE. [Concomitant]
     Active Substance: LACTULOSE
  19. CYMBALTA [Concomitant]
     Active Substance: DULOXETINE HYDROCHLORIDE
  20. ZOSYN [Concomitant]
     Active Substance: PIPERACILLIN SODIUM\TAZOBACTAM SODIUM
  21. FARXIGA [Suspect]
     Active Substance: DAPAGLIFLOZIN PROPANEDIOL
     Indication: TYPE 2 DIABETES MELLITUS
     Route: 048
     Dates: start: 20180904, end: 20190717
  22. PREDNISONE. [Concomitant]
     Active Substance: PREDNISONE
  23. FUROSEMIDE. [Concomitant]
     Active Substance: FUROSEMIDE
  24. VENLAFAXINE [Concomitant]
     Active Substance: VENLAFAXINE HYDROCHLORIDE
  25. AZITHROMYCIN ANHYDROUS. [Concomitant]
     Active Substance: AZITHROMYCIN ANHYDROUS
  26. CIPROFLOXACIN. [Concomitant]
     Active Substance: CIPROFLOXACIN
  27. INCRUSE ELLIPTA [Concomitant]
     Active Substance: UMECLIDINIUM BROMIDE
  28. CLINDAMYCIN. [Concomitant]
     Active Substance: CLINDAMYCIN
  29. MORPHINE [Concomitant]
     Active Substance: MORPHINE
  30. CEPHALEXIN. [Concomitant]
     Active Substance: CEPHALEXIN
  31. LEVAQUIN [Concomitant]
     Active Substance: LEVOFLOXACIN
  32. MUCINEX [Concomitant]
     Active Substance: GUAIFENESIN
  33. ACCOLATE [Concomitant]
     Active Substance: ZAFIRLUKAST
  34. PRAMIPEXOLE. [Concomitant]
     Active Substance: PRAMIPEXOLE
  35. DOXYCYCLINE. [Concomitant]
     Active Substance: DOXYCYCLINE
  36. FARXIGA [Suspect]
     Active Substance: DAPAGLIFLOZIN PROPANEDIOL
     Indication: BLOOD PRESSURE DECREASED
     Route: 048
     Dates: start: 20180904, end: 20190717
  37. PENICILLIN [Concomitant]
     Active Substance: PENICILLIN
  38. TOBRADEX [Concomitant]
     Active Substance: DEXAMETHASONE\TOBRAMYCIN
  39. FLOMAX [Concomitant]
     Active Substance: TAMSULOSIN HYDROCHLORIDE
  40. XOPENEX [Concomitant]
     Active Substance: LEVALBUTEROL HYDROCHLORIDE
  41. ACIDOPHILUS PROBIOTIC [Concomitant]
     Active Substance: LACTOBACILLUS ACIDOPHILUS
  42. FARXIGA [Suspect]
     Active Substance: DAPAGLIFLOZIN PROPANEDIOL
     Indication: WEIGHT DECREASED
     Route: 048
     Dates: start: 20180904, end: 20190717
  43. TESTOSTERONE. [Concomitant]
     Active Substance: TESTOSTERONE
  44. NOVOLOG [Concomitant]
     Active Substance: INSULIN ASPART
  45. PANTOPRAZOLE [Concomitant]
     Active Substance: PANTOPRAZOLE
  46. MIRALAX [Concomitant]
     Active Substance: POLYETHYLENE GLYCOL 3350

REACTIONS (6)
  - Fournier^s gangrene [Unknown]
  - Rectal abscess [Unknown]
  - Colonic abscess [Unknown]
  - Perirectal abscess [Unknown]
  - Pelvic abscess [Unknown]
  - Scrotal cellulitis [Unknown]

NARRATIVE: CASE EVENT DATE: 20190727
